FAERS Safety Report 8356816-2 (Version None)
Quarter: 2012Q1

REPORT INFORMATION
  Report Type: 
  Country: None (occurrence: None)
  Receive Date: 20120315
  Receipt Date: 20110602
  Transmission Date: 20120608
  Serious: No
  Sender: FDA-Public Use
  Company Number: PHHY2011US48779

PATIENT
  Sex: Male

DRUGS (1)
  1. GILENYA [Suspect]
     Indication: MULTIPLE SCLEROSIS
     Dosage: 0.5 MG QD, ORAL
     Dates: start: 20110527

REACTIONS (3)
  - CHEST DISCOMFORT [None]
  - HEART RATE DECREASED [None]
  - CHEST PAIN [None]
